FAERS Safety Report 19783866 (Version 1)
Quarter: 2021Q3

REPORT INFORMATION
  Report Type: Spontaneous
  Country: US (occurrence: US)
  Receive Date: 20210902
  Receipt Date: 20210902
  Transmission Date: 20211014
  Serious: Yes (Disabling)
  Sender: FDA-Public Use
  Company Number: None

PATIENT
  Age: 40 Year
  Sex: Female
  Weight: 60 kg

DRUGS (2)
  1. COSENTYX [Suspect]
     Active Substance: SECUKINUMAB
  2. LIQUID IRON SUPPLEMENT [Concomitant]

REACTIONS (4)
  - Pharyngitis streptococcal [None]
  - Mouth ulceration [None]
  - Impaired healing [None]
  - Upper respiratory tract infection [None]

NARRATIVE: CASE EVENT DATE: 20210802
